FAERS Safety Report 6895482-X (Version None)
Quarter: 2010Q3

REPORT INFORMATION
  Report Type: 
  Country: None (occurrence: None)
  Receive Date: 20100802
  Receipt Date: 20100723
  Transmission Date: 20110219
  Serious: No
  Sender: FDA-Public Use
  Company Number: PHHO2010PA09690

PATIENT
  Sex: Male

DRUGS (1)
  1. TASIGNA [Suspect]
     Dosage: UNK

REACTIONS (2)
  - ELECTROCARDIOGRAM QT INTERVAL ABNORMAL [None]
  - SINUS BRADYCARDIA [None]
